FAERS Safety Report 19421246 (Version 1)
Quarter: 2021Q2

REPORT INFORMATION
  Report Type: Spontaneous
  Country: US (occurrence: US)
  Receive Date: 20210616
  Receipt Date: 20210616
  Transmission Date: 20210717
  Serious: Yes (Other)
  Sender: FDA-Public Use
  Company Number: US-MACLEODS PHARMACEUTICALS US LTD-MAC2021031492

PATIENT

DRUGS (5)
  1. ACYCLOVIR. [Suspect]
     Active Substance: ACYCLOVIR
     Indication: HERPES SIMPLEX
     Dosage: 5 MILLIGRAM/KILOGRAM, INFUSION
     Route: 042
  2. ACYCLOVIR. [Suspect]
     Active Substance: ACYCLOVIR
     Dosage: UNK
     Route: 065
  3. ACYCLOVIR. [Suspect]
     Active Substance: ACYCLOVIR
     Indication: OESOPHAGEAL CANDIDIASIS
     Dosage: 5 MILLIGRAM/KILOGRAM, INFUSION, AFTER 8 HRS
     Route: 042
  4. AMPHOTERICIN B. [Concomitant]
     Active Substance: AMPHOTERICIN B
     Indication: OESOPHAGEAL CANDIDIASIS
     Dosage: 138 MILLIGRAM
     Route: 065
  5. AMPHOTERICIN B. [Concomitant]
     Active Substance: AMPHOTERICIN B
     Indication: HERPES SIMPLEX
     Dosage: UNK
     Route: 065

REACTIONS (5)
  - Coma [Recovered/Resolved]
  - Toxicity to various agents [Unknown]
  - Blood creatine increased [Recovered/Resolved]
  - Myoclonus [Recovered/Resolved]
  - Acute kidney injury [Recovering/Resolving]
